FAERS Safety Report 5453125-6 (Version None)
Quarter: 2007Q3

REPORT INFORMATION
  Report Type: 
  Country: None (occurrence: None)
  Receive Date: 20070914
  Receipt Date: 20070903
  Transmission Date: 20080115
  Serious: Yes (Other)
  Sender: FDA-Public Use
  Company Number: GB-PFIZER INC-2007073982

PATIENT
  Age: 54 Year
  Sex: Male

DRUGS (4)
  1. CABERGOLINE [Suspect]
  2. CO-CARELDOPA [Suspect]
  3. ENTACAPONE [Suspect]
  4. TADALAFIL [Concomitant]

REACTIONS (1)
  - PATHOLOGICAL GAMBLING [None]
